FAERS Safety Report 25887324 (Version 1)
Quarter: 2025Q4

REPORT INFORMATION
  Report Type: Report from Study
  Country: US (occurrence: US)
  Receive Date: 20251006
  Receipt Date: 20251006
  Transmission Date: 20260118
  Serious: Yes (Hospitalization, Other)
  Sender: ABBVIE
  Company Number: US-ABBVIE-6479094

PATIENT
  Age: 81 Year
  Sex: Male

DRUGS (1)
  1. VYALEV [Suspect]
     Active Substance: FOSCARBIDOPA\FOSLEVODOPA
     Indication: Parkinson^s disease
     Dosage: LAST ADMIN DATE: 2025
     Route: 058
     Dates: start: 20250802

REACTIONS (5)
  - Hospitalisation [Recovered/Resolved]
  - Hallucination, visual [Recovering/Resolving]
  - Abnormal dreams [Not Recovered/Not Resolved]
  - Paranoid personality disorder [Unknown]
  - Pulmonary oedema [Unknown]

NARRATIVE: CASE EVENT DATE: 20250101
